FAERS Safety Report 13546445 (Version 2)
Quarter: 2017Q2

REPORT INFORMATION
  Report Type: Spontaneous
  Country: US (occurrence: US)
  Receive Date: 20170515
  Receipt Date: 20170517
  Transmission Date: 20170830
  Serious: Yes (Hospitalization)
  Sender: FDA-Public Use
  Company Number: US-JNJFOC-20170510737

PATIENT
  Age: 56 Year
  Sex: Female
  Weight: 90.72 kg

DRUGS (1)
  1. XARELTO [Suspect]
     Active Substance: RIVAROXABAN
     Indication: DEEP VEIN THROMBOSIS
     Route: 048
     Dates: start: 20160425, end: 20170503

REACTIONS (1)
  - Ischaemic stroke [Unknown]

NARRATIVE: CASE EVENT DATE: 20170503
